FAERS Safety Report 4981207-1 (Version None)
Quarter: 2006Q2

REPORT INFORMATION
  Report Type: 
  Country: None (occurrence: None)
  Receive Date: 20060424
  Receipt Date: 20060410
  Transmission Date: 20061013
  Serious: Yes (Other)
  Sender: FDA-Public Use
  Company Number: GBWYE548311APR06

PATIENT
  Sex: Female

DRUGS (2)
  1. ENBREL [Suspect]
     Indication: DRUG USE FOR UNKNOWN INDICATION
     Dosage: UNKNOWN
  2. UNSPECIFIED ANTIHYPERTENSIVE AGENT [Concomitant]
     Dosage: UNKNOWN

REACTIONS (3)
  - BRONCHIECTASIS [None]
  - BRONCHIOLITIS [None]
  - PNEUMONIA [None]
